FAERS Safety Report 4674936-0 (Version None)
Quarter: 2005Q2

REPORT INFORMATION
  Report Type: 
  Country: None (occurrence: None)
  Receive Date: 20050525
  Receipt Date: 20050510
  Transmission Date: 20051028
  Serious: Yes (Other)
  Sender: FDA-Public Use
  Company Number: PIR#0505008

PATIENT
  Sex: Female

DRUGS (4)
  1. POTASSIUM CHLORIDE [Suspect]
     Indication: CARDIAC OPERATION
     Dates: start: 20050501
  2. 5% DEXTROSE AND 0.20% SODIUM CHLORIDE [Suspect]
     Indication: CARDIAC OPERATION
     Dates: start: 20050501
  3. STERILE WATER [Suspect]
     Indication: CARDIAC OPERATION
     Dates: start: 20050501
  4. STERILE WATER [Suspect]

REACTIONS (1)
  - DRUG EFFECT DECREASED [None]
